FAERS Safety Report 8609308-7 (Version None)
Quarter: 2012Q3

REPORT INFORMATION
  Report Type: 
  Country: None (occurrence: None)
  Receive Date: 20120821
  Receipt Date: 20120816
  Transmission Date: 20120928
  Serious: Yes (Other)
  Sender: FDA-Public Use
  Company Number: PHHY2012CA071276

PATIENT
  Sex: Female

DRUGS (2)
  1. ZOLEDRONOC ACID [Suspect]
     Indication: OSTEOPOROSIS
     Route: 042
     Dates: start: 20110713
  2. ZOLEDRONOC ACID [Suspect]
     Route: 042
     Dates: start: 20120802

REACTIONS (3)
  - AGITATION [None]
  - STRESS [None]
  - MUSCULOSKELETAL PAIN [None]
